FAERS Safety Report 6009412-6 (Version None)
Quarter: 2008Q4

REPORT INFORMATION
  Report Type: 
  Country: None (occurrence: None)
  Receive Date: 20081217
  Receipt Date: 20080917
  Transmission Date: 20090506
  Serious: No
  Sender: FDA-Public Use
  Company Number: US-BAYER-200834008NA

PATIENT
  Age: 28 Year
  Sex: Female

DRUGS (2)
  1. YAZ [Suspect]
     Indication: CONTRACEPTION
     Route: 048
     Dates: start: 20080901
  2. MIRENA [Suspect]
     Indication: DRUG USE FOR UNKNOWN INDICATION
     Route: 015

REACTIONS (6)
  - DYSMENORRHOEA [None]
  - EMOTIONAL DISORDER [None]
  - HORMONE LEVEL ABNORMAL [None]
  - IUCD COMPLICATION [None]
  - LIBIDO DECREASED [None]
  - OVARIAN CYST [None]
